FAERS Safety Report 20189670 (Version 1)
Quarter: 2021Q4

REPORT INFORMATION
  Report Type: Spontaneous
  Country: CO (occurrence: CO)
  Receive Date: 20211215
  Receipt Date: 20211215
  Transmission Date: 20220303
  Serious: No
  Sender: FDA-Public Use
  Company Number: CO-PFIZER INC-202101051306

PATIENT
  Age: 12 Year
  Sex: Female

DRUGS (1)
  1. GENOTROPIN [Suspect]
     Active Substance: SOMATROPIN
     Dosage: 2 MG, UNSPECIFIED FREQUENCY
     Route: 058
     Dates: end: 20210808

REACTIONS (2)
  - Drug dose omission by device [Unknown]
  - Device information output issue [Unknown]

NARRATIVE: CASE EVENT DATE: 20210808
